FAERS Safety Report 21116954 (Version 1)
Quarter: 2022Q3

REPORT INFORMATION
  Report Type: Spontaneous
  Country: FR (occurrence: FR)
  Receive Date: 20220722
  Receipt Date: 20220722
  Transmission Date: 20221027
  Serious: Yes (Life-Threatening, Hospitalization)
  Sender: FDA-Public Use
  Company Number: None

PATIENT
  Age: 40 Year
  Sex: Female

DRUGS (3)
  1. DIAZEPAM [Suspect]
     Active Substance: DIAZEPAM
     Indication: Poisoning deliberate
     Dosage: 40 CP, 400MG, FREQUENCY TIME 1TOTAL, DURATION 1DAYS
     Route: 065
     Dates: start: 20220607, end: 20220607
  2. BACLOFEN [Suspect]
     Active Substance: BACLOFEN
     Indication: Poisoning deliberate
     Dosage: 114 CP, 1140MG, FREQUENCY TIME 1 TOTAL,DURATION 1DAYS
     Route: 065
     Dates: start: 20220607, end: 20220607
  3. LORAZEPAM [Suspect]
     Active Substance: LORAZEPAM
     Indication: Poisoning deliberate
     Dosage: 23DF, FREQUENCY TIME 1TOTAL, DURATION 1DAYS
     Route: 065
     Dates: start: 20220607, end: 20220607

REACTIONS (2)
  - Coma [Recovering/Resolving]
  - Oliguria [Recovered/Resolved]

NARRATIVE: CASE EVENT DATE: 20220607
